FAERS Safety Report 16716166 (Version 1)
Quarter: 2019Q3

REPORT INFORMATION
  Report Type: Spontaneous
  Country: US (occurrence: US)
  Receive Date: 20190702
  Receipt Date: 20190702
  Transmission Date: 20191005
  Serious: Yes (Disabling)
  Sender: FDA-Public Use
  Company Number: None

PATIENT
  Age: 75 Year
  Sex: Female
  Weight: 77.11 kg

DRUGS (12)
  1. AMOX-CLAV XR 1000 [Suspect]
     Active Substance: AMOXICILLIN\CLAVULANATE POTASSIUM
     Indication: DIVERTICULITIS
     Dosage: ?          QUANTITY:2 PILLS;?
     Route: 048
     Dates: start: 20190609, end: 20190610
  2. CHOLESTYRAMINE 4G DOSE [Concomitant]
  3. SODIUM BICARBONATE, 325 MG 2-3X DAY [Concomitant]
  4. SYMBICORT 2 PUFFS 2X DAY [Concomitant]
  5. PROCRIT INJECTION EVERY OTHER WEEK [Concomitant]
  6. MULTIVITAMIN [Concomitant]
     Active Substance: VITAMINS
  7. PROAIR 2 PUFFS AS NEEDED [Concomitant]
  8. LEVOTHYROXIN 75MG  1X DAY (THYROID) [Concomitant]
  9. CITALOPRAM 10 MG 1X DAY (LEXAPRO) [Concomitant]
  10. GABAPENTIN 100MG  1 - 2X DAY [Concomitant]
  11. FLONAISE  AS NEEDED [Concomitant]
  12. ELIQUIS [Concomitant]
     Active Substance: APIXABAN

REACTIONS (2)
  - Laboratory test abnormal [None]
  - Arthralgia [None]

NARRATIVE: CASE EVENT DATE: 20190610
